FAERS Safety Report 9995820 (Version 1)
Quarter: 2014Q1

REPORT INFORMATION
  Report Type: Spontaneous
  Country: US (occurrence: None)
  Receive Date: 20140310
  Receipt Date: 20140310
  Transmission Date: 20141002
  Serious: Yes (Life-Threatening, Hospitalization, Other)
  Sender: FDA-Public Use
  Company Number: None

PATIENT
  Age: 82 Year
  Sex: Male
  Weight: 93.2 kg

DRUGS (8)
  1. AMIDARONE [Suspect]
     Indication: ATRIAL FIBRILLATION
     Dosage: 1 TABLET
     Route: 048
     Dates: start: 20140212, end: 20140217
  2. XARELTO [Concomitant]
  3. ASPIRIN [Concomitant]
  4. ATORVASTATIN [Concomitant]
  5. HYDRALAZINE [Concomitant]
  6. METOPROLOL SUCCINATE [Concomitant]
  7. TRIBENZOR [Concomitant]
  8. TAMSULOSIN [Concomitant]

REACTIONS (7)
  - Dyspnoea [None]
  - Haemoptysis [None]
  - Pulmonary toxicity [None]
  - Bronchial disorder [None]
  - Thrombosis [None]
  - Pulmonary haemorrhage [None]
  - Pyrexia [None]
